FAERS Safety Report 11926860 (Version 1)
Quarter: 2016Q1

REPORT INFORMATION
  Report Type: Spontaneous
  Country: FR (occurrence: FR)
  Receive Date: 20160119
  Receipt Date: 20160119
  Transmission Date: 20160526
  Serious: Yes (Hospitalization, Other)
  Sender: FDA-Public Use
  Company Number: FR-PFIZER INC-2016013382

PATIENT
  Age: 86 Year
  Sex: Male

DRUGS (6)
  1. LASILIX /00032601/ [Concomitant]
     Active Substance: FUROSEMIDE
  2. TIAPRIDAL /00435701/ [Concomitant]
     Active Substance: TIAPRIDE HYDROCHLORIDE
  3. PREVISCAN /00789001/ [Concomitant]
     Active Substance: FLUINDIONE
  4. XATRAL [Concomitant]
     Active Substance: ALFUZOSIN
  5. AMLOR [Suspect]
     Active Substance: AMLODIPINE BESYLATE
     Indication: HYPERTENSION
     Dosage: UNK
     Route: 048
  6. BISOPROLOL HEMIFUMARATE [Suspect]
     Active Substance: BISOPROLOL FUMARATE
     Indication: ATRIAL FIBRILLATION
     Dosage: UNK
     Route: 048

REACTIONS (2)
  - Renal failure [Unknown]
  - Bradycardia [Unknown]

NARRATIVE: CASE EVENT DATE: 20151128
